FAERS Safety Report 14757566 (Version 1)
Quarter: 2018Q2

REPORT INFORMATION
  Report Type: Spontaneous
  Country: US (occurrence: US)
  Receive Date: 20180409
  Receipt Date: 20180409
  Transmission Date: 20180711
  Serious: Yes (Death)
  Sender: FDA-Public Use
  Company Number: None

PATIENT
  Age: 74 Year
  Sex: Female

DRUGS (9)
  1. VASCEPA [Concomitant]
     Active Substance: ICOSAPENT ETHYL
  2. OMEPRAZOLE. [Concomitant]
     Active Substance: OMEPRAZOLE
  3. ESBRIET [Suspect]
     Active Substance: PIRFENIDONE
     Indication: IDIOPATHIC PULMONARY FIBROSIS
     Route: 048
  4. JANUMET [Concomitant]
     Active Substance: METFORMIN HYDROCHLORIDE\SITAGLIPTIN PHOSPHATE
  5. MELOXICAM. [Concomitant]
     Active Substance: MELOXICAM
  6. ATORVASTATIN [Concomitant]
     Active Substance: ATORVASTATIN
  7. FERROUS SULF [Concomitant]
     Active Substance: FERROUS SULFATE
  8. TRULICITY [Concomitant]
     Active Substance: DULAGLUTIDE
  9. TRESIBA [Concomitant]
     Active Substance: INSULIN DEGLUDEC

REACTIONS (1)
  - Death [None]

NARRATIVE: CASE EVENT DATE: 20180406
